FAERS Safety Report 24391220 (Version 2)
Quarter: 2024Q4

REPORT INFORMATION
  Report Type: Spontaneous
  Country: US (occurrence: US)
  Receive Date: 20241003
  Receipt Date: 20241017
  Transmission Date: 20250115
  Serious: No
  Sender: ROCHE
  Company Number: US-ROCHE-10000094518

PATIENT
  Age: 62 Year
  Sex: Female

DRUGS (4)
  1. TENECTEPLASE [Suspect]
     Active Substance: TENECTEPLASE
     Indication: Pulmonary embolism
     Dosage: HALF-DOSE
     Route: 065
  2. TENECTEPLASE [Suspect]
     Active Substance: TENECTEPLASE
     Indication: Right ventricular dilatation
  3. TAMIFLU [Concomitant]
     Active Substance: OSELTAMIVIR PHOSPHATE
     Indication: Influenza
  4. LEVAQUIN [Concomitant]
     Active Substance: LEVOFLOXACIN
     Indication: Pneumonia

REACTIONS (2)
  - Off label use [Unknown]
  - No adverse event [Unknown]
